FAERS Safety Report 4561098-3 (Version None)
Quarter: 2005Q1

REPORT INFORMATION
  Report Type: 
  Country: None (occurrence: None)
  Receive Date: 20050121
  Receipt Date: 20050107
  Transmission Date: 20050727
  Serious: Yes (Other)
  Sender: FDA-Public Use
  Company Number: 141122USA

PATIENT
  Age: 35 Year
  Sex: Female

DRUGS (6)
  1. COPAXONE [Suspect]
     Indication: MULTIPLE SCLEROSIS
     Dosage: 20 MILLIGRAM QD SUBCUTANEOUS
     Route: 058
     Dates: start: 20040730, end: 20050105
  2. FLOVENT [Concomitant]
  3. ZANTAC [Concomitant]
  4. APREVE [Concomitant]
  5. EXCEDRIN MIGRAINE FORMULA [Concomitant]
  6. CLARITIN [Concomitant]

REACTIONS (8)
  - CHEST DISCOMFORT [None]
  - FLUSHING [None]
  - INJECTION SITE INDURATION [None]
  - INJECTION SITE NECROSIS [None]
  - INJECTION SITE OEDEMA [None]
  - PALPITATIONS [None]
  - POST PROCEDURAL COMPLICATION [None]
  - SKIN ULCER [None]
